FAERS Safety Report 4383406-9 (Version None)
Quarter: 2004Q2

REPORT INFORMATION
  Report Type: 
  Country: None (occurrence: None)
  Receive Date: 20040623
  Receipt Date: 20040614
  Transmission Date: 20050107
  Serious: Yes (Other)
  Sender: FDA-Public Use
  Company Number: PHBS2004CA07754

PATIENT
  Sex: Female

DRUGS (2)
  1. DIOVAN [Suspect]
     Dosage: 160 MG/DAY
     Route: 048
  2. DIOVAN HCT [Suspect]
     Indication: HYPERTENSION
     Dosage: VALS 160 / HCT 12.5 MG/DAY
     Route: 048

REACTIONS (1)
  - TACHYCARDIA [None]
